FAERS Safety Report 8499413-0 (Version None)
Quarter: 2012Q2

REPORT INFORMATION
  Report Type: 
  Country: None (occurrence: None)
  Receive Date: 20120619
  Receipt Date: 20120608
  Transmission Date: 20120825
  Serious: No
  Sender: FDA-Public Use
  Company Number: 2012031831

PATIENT
  Sex: Female
  Weight: 61.2356 kg

DRUGS (39)
  1. VIVAGLOBIN [Suspect]
  2. VIVAGLOBIN [Suspect]
  3. VIVAGLOBIN [Suspect]
  4. VIVAGLOBIN [Suspect]
  5. VIVAGLOBIN [Suspect]
  6. VIVAGLOBIN [Suspect]
  7. VIVAGLOBIN [Suspect]
  8. VIVAGLOBIN [Suspect]
     Indication: HUMORAL IMMUNE DEFECT
     Dosage: (9.6 G 1X/WEEK, STOP DAY MAY 2011 SUBCUTANEOUS)
     Route: 058
     Dates: start: 20100607
  9. VIVAGLOBIN [Suspect]
     Indication: HUMORAL IMMUNE DEFECT
     Dosage: (9.6 G 1X/WEEK, STOP DAY MAY 2011 SUBCUTANEOUS)
     Route: 058
     Dates: start: 20110329
  10. VIVAGLOBIN [Suspect]
     Indication: HUMORAL IMMUNE DEFECT
     Dosage: (9.6 G 1X/WEEK, STOP DAY MAY 2011 SUBCUTANEOUS)
     Route: 058
     Dates: start: 20101122
  11. VIVAGLOBIN [Suspect]
     Indication: HUMORAL IMMUNE DEFECT
     Dosage: (9.6 G 1X/WEEK, STOP DAY MAY 2011 SUBCUTANEOUS)
     Route: 058
     Dates: start: 20110106
  12. VIVAGLOBIN [Suspect]
     Indication: HUMORAL IMMUNE DEFECT
     Dosage: (9.6 G 1X/WEEK, STOP DAY MAY 2011 SUBCUTANEOUS)
     Route: 058
     Dates: start: 20110126
  13. VIVAGLOBIN [Suspect]
     Indication: HUMORAL IMMUNE DEFECT
     Dosage: (9.6 G 1X/WEEK, STOP DAY MAY 2011 SUBCUTANEOUS)
     Route: 058
     Dates: start: 20091117
  14. VIVAGLOBIN [Suspect]
     Indication: HUMORAL IMMUNE DEFECT
     Dosage: (9.6 G 1X/WEEK, STOP DAY MAY 2011 SUBCUTANEOUS)
     Route: 058
     Dates: start: 20100803
  15. VIVAGLOBIN [Suspect]
     Indication: HUMORAL IMMUNE DEFECT
     Dosage: (9.6 G 1X/WEEK, STOP DAY MAY 2011 SUBCUTANEOUS)
     Route: 058
     Dates: start: 20100706
  16. VIVAGLOBIN [Suspect]
     Indication: HUMORAL IMMUNE DEFECT
     Dosage: (9.6 G 1X/WEEK, STOP DAY MAY 2011 SUBCUTANEOUS)
     Route: 058
     Dates: start: 20110222
  17. VIVAGLOBIN [Suspect]
     Indication: HUMORAL IMMUNE DEFECT
     Dosage: (9.6 G 1X/WEEK, STOP DAY MAY 2011 SUBCUTANEOUS)
     Route: 058
     Dates: start: 20100118
  18. VIVAGLOBIN [Suspect]
     Indication: HUMORAL IMMUNE DEFECT
     Dosage: (9.6 G 1X/WEEK, STOP DAY MAY 2011 SUBCUTANEOUS)
     Route: 058
     Dates: start: 20100511
  19. VIVAGLOBIN [Suspect]
     Indication: HUMORAL IMMUNE DEFECT
     Dosage: (9.6 G 1X/WEEK, STOP DAY MAY 2011 SUBCUTANEOUS)
     Route: 058
     Dates: start: 20100831
  20. VIVAGLOBIN [Suspect]
     Indication: HUMORAL IMMUNE DEFECT
     Dosage: (9.6 G 1X/WEEK, STOP DAY MAY 2011 SUBCUTANEOUS)
     Route: 058
     Dates: start: 20091117
  21. VIVAGLOBIN [Suspect]
     Indication: HUMORAL IMMUNE DEFECT
     Dosage: (9.6 G 1X/WEEK, STOP DAY MAY 2011 SUBCUTANEOUS)
     Route: 058
     Dates: start: 20100316
  22. VIVAGLOBIN [Suspect]
     Indication: HUMORAL IMMUNE DEFECT
     Dosage: (9.6 G 1X/WEEK, STOP DAY MAY 2011 SUBCUTANEOUS)
     Route: 058
     Dates: start: 20091215
  23. VIVAGLOBIN [Suspect]
     Indication: HUMORAL IMMUNE DEFECT
     Dosage: (9.6 G 1X/WEEK, STOP DAY MAY 2011 SUBCUTANEOUS)
     Route: 058
     Dates: start: 20100216
  24. VIVAGLOBIN [Suspect]
     Indication: HUMORAL IMMUNE DEFECT
     Dosage: (9.6 G 1X/WEEK, STOP DAY MAY 2011 SUBCUTANEOUS)
     Route: 058
     Dates: start: 20100928
  25. VIVAGLOBIN [Suspect]
     Indication: HUMORAL IMMUNE DEFECT
     Dosage: (9.6 G 1X/WEEK, STOP DAY MAY 2011 SUBCUTANEOUS)
     Route: 058
     Dates: start: 20101026
  26. VIVAGLOBIN [Suspect]
     Indication: HUMORAL IMMUNE DEFECT
     Dosage: (9.6 G 1X/WEEK, STOP DAY MAY 2011 SUBCUTANEOUS)
     Route: 058
     Dates: start: 20101221
  27. VIVAGLOBIN [Suspect]
     Indication: HUMORAL IMMUNE DEFECT
     Dosage: (9.6 G 1X/WEEK, STOP DAY MAY 2011 SUBCUTANEOUS)
     Route: 058
     Dates: start: 20110427
  28. VIVAGLOBIN [Suspect]
  29. VIVAGLOBIN [Suspect]
  30. VIVAGLOBIN [Suspect]
  31. VIVAGLOBIN [Suspect]
  32. VIVAGLOBIN [Suspect]
  33. VIVAGLOBIN [Concomitant]
  34. VIVAGLOBIN [Suspect]
  35. VIVAGLOBIN [Suspect]
  36. VIVAGLOBIN [Suspect]
  37. VIVAGLOBIN [Suspect]
  38. VIVAGLOBIN [Suspect]
  39. VIVAGLOBIN [Suspect]

REACTIONS (2)
  - TRANSMISSION OF AN INFECTIOUS AGENT VIA A MEDICINAL PRODUCT [None]
  - HERPES SIMPLEX SEROLOGY POSITIVE [None]
